FAERS Safety Report 7583211-6 (Version None)
Quarter: 2011Q2

REPORT INFORMATION
  Report Type: 
  Country: None (occurrence: None)
  Receive Date: 20110627
  Receipt Date: 20110627
  Transmission Date: 20111010
  Serious: Yes (Other)
  Sender: FDA-Public Use
  Company Number: None

PATIENT
  Sex: Female

DRUGS (1)
  1. AVONEX [Suspect]
     Indication: MULTIPLE SCLEROSIS
     Dosage: 30MG QWK IM
     Route: 030
     Dates: start: 20110528, end: 20110611

REACTIONS (4)
  - FLUID INTAKE REDUCED [None]
  - HYPOPHAGIA [None]
  - VOMITING [None]
  - NAUSEA [None]
